FAERS Safety Report 8937163 (Version 1)
Quarter: 2012Q4

REPORT INFORMATION
  Report Type: Spontaneous
  Country: US (occurrence: None)
  Receive Date: 20121128
  Receipt Date: 20121128
  Transmission Date: 20130627
  Serious: Yes (Hospitalization, Disabling, Other)
  Sender: FDA-Public Use
  Company Number: None

PATIENT
  Age: 88 Year
  Sex: Female
  Weight: 46.27 kg

DRUGS (1)
  1. PROLIA [Suspect]
     Indication: BONE DISORDER
     Dosage: 1 shot
     Dates: start: 20120517

REACTIONS (4)
  - Oedema peripheral [None]
  - Pain in extremity [None]
  - Skin disorder [None]
  - Oedema peripheral [None]
